FAERS Safety Report 4898333-8 (Version None)
Quarter: 2006Q1

REPORT INFORMATION
  Report Type: 
  Country: None (occurrence: None)
  Receive Date: 20060127
  Receipt Date: 20060110
  Transmission Date: 20060701
  Serious: No
  Sender: FDA-Public Use
  Company Number: US200512004441

PATIENT
  Age: 87 Year
  Sex: Female

DRUGS (3)
  1. FORTEO [Suspect]
     Indication: OSTEOPOROSIS
     Dates: start: 20051130
  2. FORTEO [Concomitant]
  3. CALCIUM (CALCIUM) [Concomitant]

REACTIONS (6)
  - DEVICE OCCLUSION [None]
  - INJECTION SITE HAEMORRHAGE [None]
  - MICTURITION URGENCY [None]
  - NEPHROLITHIASIS [None]
  - PHARMACEUTICAL PRODUCT COMPLAINT [None]
  - URINARY TRACT INFECTION [None]
